FAERS Safety Report 26172162 (Version 1)
Quarter: 2025Q4

REPORT INFORMATION
  Report Type: Spontaneous
  Country: EU (occurrence: EU)
  Receive Date: 20251218
  Receipt Date: 20251218
  Transmission Date: 20260117
  Serious: Yes (Hospitalization, Disabling)
  Sender: ACCORD
  Company Number: None

PATIENT
  Age: 61 Year
  Sex: Female

DRUGS (11)
  1. ROSUVASTATIN CALCIUM [Suspect]
     Active Substance: ROSUVASTATIN CALCIUM
     Indication: Myocardial ischaemia
     Dates: start: 20131008, end: 20250319
  2. TIRZEPATIDE [Suspect]
     Active Substance: TIRZEPATIDE
     Indication: Obesity
     Dates: start: 20250220, end: 20250319
  3. SUMATRIPTAN [Concomitant]
     Active Substance: SUMATRIPTAN
     Dates: start: 20201021
  4. PREGABALIN [Concomitant]
     Active Substance: PREGABALIN
     Dates: start: 20240503
  5. AMITRIPTYLINE [Concomitant]
     Active Substance: AMITRIPTYLINE
     Dates: start: 20240110
  6. IMOVANE [Concomitant]
     Active Substance: ZOPICLONE
     Dates: start: 20201021
  7. ASPIRIN [Concomitant]
     Active Substance: ASPIRIN
     Dates: start: 20190513
  8. ESCITALOPRAM [Concomitant]
     Active Substance: ESCITALOPRAM OXALATE
     Dates: start: 20240110
  9. METOPROLOL [Concomitant]
     Active Substance: METOPROLOL
     Dates: start: 20190513
  10. PROPIOMAZINE [Concomitant]
     Active Substance: PROPIOMAZINE
     Dates: start: 20201021
  11. ACETAMINOPHEN [Concomitant]
     Active Substance: ACETAMINOPHEN
     Dates: start: 20181217

REACTIONS (5)
  - Rhabdomyolysis [Recovered/Resolved with Sequelae]
  - Acute kidney injury [Recovered/Resolved with Sequelae]
  - Liver disorder [Recovered/Resolved]
  - Abdominal discomfort [Unknown]
  - Myalgia [Unknown]

NARRATIVE: CASE EVENT DATE: 20230301
